FAERS Safety Report 12357556 (Version 1)
Quarter: 2016Q2

REPORT INFORMATION
  Report Type: Report from Study
  Country: US (occurrence: US)
  Receive Date: 20160512
  Receipt Date: 20160512
  Transmission Date: 20160815
  Serious: Yes (Other)
  Sender: FDA-Public Use
  Company Number: US-ROCHE-1755349

PATIENT

DRUGS (2)
  1. RIBAVIRIN. [Suspect]
     Active Substance: RIBAVIRIN
     Indication: RESPIRATORY SYNCYTIAL VIRUS INFECTION
     Dosage: MEDIAN DOSE: 1200 MG/DAY (RANGE 800-1800)
     Route: 048
  2. IMMUNOGLOBULIN [Concomitant]
     Active Substance: HUMAN IMMUNOGLOBULIN G
     Indication: RESPIRATORY SYNCYTIAL VIRUS INFECTION
     Dosage: DOSE: 0.5 G/KG EVERY 48 H PER PHYSICIAN^S DISCRETION.
     Route: 065

REACTIONS (2)
  - Lactic acidosis [Unknown]
  - Haemolysis [Unknown]
